FAERS Safety Report 7001629-7 (Version None)
Quarter: 2010Q3

REPORT INFORMATION
  Report Type: 
  Country: None (occurrence: None)
  Receive Date: 20100917
  Receipt Date: 20100917
  Transmission Date: 20110219
  Serious: Yes (Other)
  Sender: FDA-Public Use
  Company Number: None

PATIENT
  Sex: Female
  Weight: 63.5036 kg

DRUGS (1)
  1. FENOFIBRIC ACID [Suspect]
     Indication: BLOOD TRIGLYCERIDES
     Dosage: 105MG 1 PER DAY MOUTH
     Route: 048
     Dates: start: 20100601, end: 20100801

REACTIONS (8)
  - BACK PAIN [None]
  - BLOOD URINE PRESENT [None]
  - HEADACHE [None]
  - INFLUENZA LIKE ILLNESS [None]
  - MUSCULAR WEAKNESS [None]
  - MYALGIA [None]
  - PYREXIA [None]
  - THROAT IRRITATION [None]
